FAERS Safety Report 6046781-5 (Version None)
Quarter: 2009Q1

REPORT INFORMATION
  Report Type: 
  Country: None (occurrence: None)
  Receive Date: 20090122
  Receipt Date: 20090116
  Transmission Date: 20090719
  Serious: Yes (Hospitalization)
  Sender: FDA-Public Use
  Company Number: A0695006A

PATIENT
  Age: 36 Year
  Sex: Female
  Weight: 145.5 kg

DRUGS (7)
  1. AVANDIA [Suspect]
     Indication: DIABETES MELLITUS
     Dosage: 8MG PER DAY
     Route: 048
     Dates: start: 19990101, end: 20070301
  2. METFORMIN [Concomitant]
     Dates: start: 19920101
  3. DIABETA [Concomitant]
     Dates: start: 20010101
  4. LIPITOR [Concomitant]
     Dates: start: 20010101
  5. XANAX [Concomitant]
     Dates: start: 20010101
  6. MULTI-VITAMIN [Concomitant]
  7. FISH OIL [Concomitant]

REACTIONS (2)
  - CARDIAC FAILURE CONGESTIVE [None]
  - MYOCARDIAL INFARCTION [None]
